FAERS Safety Report 17336945 (Version 2)
Quarter: 2020Q2

REPORT INFORMATION
  Report Type: Spontaneous
  Country: US (occurrence: US)
  Receive Date: 20200128
  Receipt Date: 20200507
  Transmission Date: 20200713
  Serious: No
  Sender: FDA-Public Use
  Company Number: US-PFIZER INC-2019483603

PATIENT
  Age: 66 Year
  Sex: Male

DRUGS (3)
  1. CAMPTOSAR [Suspect]
     Active Substance: IRINOTECAN HYDROCHLORIDE
     Indication: RECTAL CANCER
     Dosage: 100 MG, CYCLIC (EVERY 21 DAYS)
     Dates: start: 20191101
  2. CAMPTOSAR [Suspect]
     Active Substance: IRINOTECAN HYDROCHLORIDE
     Indication: METASTASES TO LUNG
     Dosage: 392 MG, CYCLIC EVERY (3 WEEKS)
  3. CAMPTOSAR [Suspect]
     Active Substance: IRINOTECAN HYDROCHLORIDE
     Dosage: 400 MG, CYCLIC (EVERY 21 DAYS)

REACTIONS (3)
  - Nausea [Unknown]
  - Activated protein C resistance [Unknown]
  - Vomiting [Unknown]
